FAERS Safety Report 17988830 (Version 10)
Quarter: 2024Q4

REPORT INFORMATION
  Report Type: Spontaneous
  Country: US (occurrence: US)
  Receive Date: 20200707
  Receipt Date: 20241220
  Transmission Date: 20250115
  Serious: Yes (Other)
  Sender: PFIZER
  Company Number: US-PFIZER INC-2020259256

PATIENT
  Age: 74 Year
  Sex: Female
  Weight: 101.13 kg

DRUGS (11)
  1. INLYTA [Suspect]
     Active Substance: AXITINIB
     Indication: Anticoagulant therapy
     Dosage: 5 MG
  2. INLYTA [Suspect]
     Active Substance: AXITINIB
     Indication: Lung neoplasm malignant
     Dosage: 2 MG, 2X/DAY
     Route: 048
  3. INLYTA [Suspect]
     Active Substance: AXITINIB
     Dosage: 2 MG, DAILY
     Route: 048
  4. INLYTA [Suspect]
     Active Substance: AXITINIB
     Dosage: 2 MG PO (PER ORAL) BID (TWICE A DAY)
     Route: 048
  5. INLYTA [Suspect]
     Active Substance: AXITINIB
     Dosage: 6 MG
  6. INLYTA [Suspect]
     Active Substance: AXITINIB
     Dosage: 1 MG 4 PILL DAILY, MORNING/NIGHT, FREQUENCY: 2
     Route: 048
  7. INLYTA [Suspect]
     Active Substance: AXITINIB
     Dosage: 3 MG PO (ORAL) BID (TWICE A DAY)
     Route: 048
  8. BENAZEPRIL [Concomitant]
     Active Substance: BENAZEPRIL HYDROCHLORIDE
     Indication: Blood pressure abnormal
     Dosage: 20 MG MORNING
  9. AMLODIPINE [Concomitant]
     Active Substance: AMLODIPINE BESYLATE
     Indication: Blood pressure abnormal
     Dosage: 5 MG NIGHT
  10. WARFARIN [Concomitant]
     Active Substance: WARFARIN
     Indication: Atrial fibrillation
     Dosage: 2 MG, DAILY
  11. ALLOPURINOL [Concomitant]
     Active Substance: ALLOPURINOL
     Indication: Gout
     Dosage: 300 MG / DAILY ONLY WHEN NEEDED

REACTIONS (3)
  - Device related infection [Unknown]
  - Off label use [Unknown]
  - Product prescribing error [Unknown]
